FAERS Safety Report 15553523 (Version 1)
Quarter: 2018Q4

REPORT INFORMATION
  Report Type: Spontaneous
  Country: HU (occurrence: HU)
  Receive Date: 20181026
  Receipt Date: 20181026
  Transmission Date: 20190205
  Serious: Yes (Hospitalization)
  Sender: FDA-Public Use
  Company Number: HU-TEVA-2018-HU-968808

PATIENT
  Age: 10 Year
  Sex: Female

DRUGS (7)
  1. MYFENAX [Suspect]
     Active Substance: MYCOPHENOLATE MOFETIL
     Indication: NEPHROTIC SYNDROME
     Route: 048
     Dates: start: 20180706
  2. PREDNISOLONE. [Concomitant]
     Active Substance: PREDNISOLONE
     Indication: NEPHROTIC SYNDROME
     Dosage: 10 MILLIGRAM DAILY;
     Route: 048
     Dates: start: 20180727
  3. EDNYT [Concomitant]
     Indication: HYPERTENSION
     Route: 048
     Dates: start: 20150826
  4. PANTOPRAZOLE [Concomitant]
     Active Substance: PANTOPRAZOLE
     Indication: PROPHYLAXIS AGAINST GASTROINTESTINAL ULCER
     Dosage: 20 MILLIGRAM DAILY;
     Route: 048
     Dates: start: 20180727
  5. K?LIUM-R [Concomitant]
     Indication: SUPPORTIVE CARE
     Dosage: 1 DOSAGE FORMS DAILY;
     Route: 048
     Dates: start: 20180727
  6. SUMETROLIM [Concomitant]
     Active Substance: SULFAMETHOXAZOLE\TRIMETHOPRIM
     Indication: SUPPORTIVE CARE
     Route: 048
     Dates: start: 20180717
  7. HUMULIN M3 [Concomitant]
     Active Substance: INSULIN HUMAN
     Indication: DIABETES MELLITUS
     Dosage: 12 IU (INTERNATIONAL UNIT) DAILY;
     Route: 058
     Dates: start: 20180611

REACTIONS (1)
  - Polyuria [Not Recovered/Not Resolved]

NARRATIVE: CASE EVENT DATE: 20180730
